FAERS Safety Report 11456434 (Version 2)
Quarter: 2015Q4

REPORT INFORMATION
  Report Type: Spontaneous
  Country: BR (occurrence: BR)
  Receive Date: 20150903
  Receipt Date: 20151021
  Transmission Date: 20160304
  Serious: Yes (Hospitalization)
  Sender: FDA-Public Use
  Company Number: BR-PFIZER INC-2015289719

PATIENT
  Age: 80 Year
  Sex: Female
  Weight: 72 kg

DRUGS (3)
  1. LIPITOR [Suspect]
     Active Substance: ATORVASTATIN CALCIUM
     Dosage: 20 MG, DAILY
     Route: 048
     Dates: start: 2005, end: 2013
  2. DETRUSITOL LA [Suspect]
     Active Substance: TOLTERODINE TARTRATE
     Dosage: ONE TABLET (4 MG), DAILY
     Route: 048
     Dates: start: 2012, end: 201402
  3. VESICARE [Concomitant]
     Active Substance: SOLIFENACIN SUCCINATE
     Dosage: ONE UNIT (10 MG), 1X/DAY (AT NIGHT)
     Dates: start: 2012, end: 201407

REACTIONS (4)
  - Aortic aneurysm [Recovered/Resolved]
  - Rhinitis [Recovered/Resolved]
  - Labyrinthitis [Unknown]
  - Spinal disorder [Recovering/Resolving]

NARRATIVE: CASE EVENT DATE: 20140222
